FAERS Safety Report 7717248-0 (Version None)
Quarter: 2011Q3

REPORT INFORMATION
  Report Type: 
  Country: None (occurrence: None)
  Receive Date: 20110830
  Receipt Date: 20110411
  Transmission Date: 20111222
  Serious: No
  Sender: FDA-Public Use
  Company Number: US-BAYER-2011-032425

PATIENT
  Sex: Female

DRUGS (1)
  1. MIRENA [Suspect]
     Indication: PRODUCT USED FOR UNKNOWN INDICATION
     Dosage: UNK
     Dates: start: 20100301

REACTIONS (6)
  - DEVICE DISLOCATION [None]
  - FUNGAL INFECTION [None]
  - ABDOMINAL PAIN [None]
  - URINARY TRACT INFECTION [None]
  - METRORRHAGIA [None]
  - VAGINAL HAEMORRHAGE [None]
